FAERS Safety Report 13354441 (Version 1)
Quarter: 2017Q1

REPORT INFORMATION
  Report Type: Report from Study
  Country: MX (occurrence: MX)
  Receive Date: 20170321
  Receipt Date: 20170321
  Transmission Date: 20170429
  Serious: Yes (Disabling, Other)
  Sender: FDA-Public Use
  Company Number: MX-BAYER-2016-110004

PATIENT
  Age: 61 Year
  Sex: Male
  Weight: 110 kg

DRUGS (2)
  1. BETAFERON [Suspect]
     Active Substance: INTERFERON BETA-1B
     Indication: MULTIPLE SCLEROSIS
     Dosage: 1 DF, QOD
     Dates: start: 20120412, end: 201611
  2. EXTAVIA [Suspect]
     Active Substance: INTERFERON BETA-1B
     Indication: MULTIPLE SCLEROSIS
     Dosage: UNK
     Dates: start: 20160301, end: 201605

REACTIONS (9)
  - Visual impairment [Recovering/Resolving]
  - Pain in extremity [Recovering/Resolving]
  - Fatigue [Recovered/Resolved]
  - Cardiac disorder [None]
  - Impaired work ability [Recovering/Resolving]
  - Pyrexia [Not Recovered/Not Resolved]
  - Tremor [None]
  - Hypotension [Not Recovered/Not Resolved]
  - Insomnia [Recovered/Resolved]

NARRATIVE: CASE EVENT DATE: 20160301
